FAERS Safety Report 5441477-2 (Version None)
Quarter: 2007Q3

REPORT INFORMATION
  Report Type: 
  Country: None (occurrence: None)
  Receive Date: 20070904
  Receipt Date: 20070824
  Transmission Date: 20080115
  Serious: Yes (Hospitalization)
  Sender: FDA-Public Use
  Company Number: PHHO2007DE14030

PATIENT
  Age: 36 Year
  Sex: Female
  Weight: 95.8 kg

DRUGS (6)
  1. RAD [Suspect]
  2. MYFORTIC [Suspect]
     Indication: RENAL TRANSPLANT
     Route: 048
  3. PANTOPRAZOLE SODIUM [Suspect]
  4. VALCYTE [Suspect]
  5. COTRIM [Suspect]
  6. NEORAL [Suspect]
     Dosage: 1.5 MG, BID
     Route: 048

REACTIONS (3)
  - CYST DRAINAGE [None]
  - LEUKOPENIA [None]
  - LYMPHOCELE [None]
